FAERS Safety Report 22636658 (Version 1)
Quarter: 2023Q2

REPORT INFORMATION
  Report Type: Spontaneous
  Country: US (occurrence: US)
  Receive Date: 20230623
  Receipt Date: 20230623
  Transmission Date: 20230721
  Serious: Yes (Other)
  Sender: FDA-Public Use
  Company Number: US-BEH-2023159745

PATIENT
  Age: 76 Year
  Sex: Female
  Weight: 62.132 kg

DRUGS (3)
  1. HAEGARDA [Suspect]
     Active Substance: HUMAN C1-ESTERASE INHIBITOR
     Indication: Hereditary angioedema
     Dosage: 3600 INTERNATIONAL UNIT, BIW
     Route: 058
     Dates: start: 202305
  2. HAEGARDA [Suspect]
     Active Substance: HUMAN C1-ESTERASE INHIBITOR
     Indication: Prophylaxis
     Dosage: 3600 INTERNATIONAL UNIT/KILOGRAM
     Route: 058
  3. HAEGARDA [Suspect]
     Active Substance: HUMAN C1-ESTERASE INHIBITOR
     Dosage: 4000 INTERNATIONAL UNIT
     Route: 058

REACTIONS (8)
  - Hereditary angioedema [Recovering/Resolving]
  - Dysphonia [Recovering/Resolving]
  - Hereditary angioedema [Unknown]
  - Nasal congestion [Unknown]
  - Feeling hot [Unknown]
  - Dizziness [Unknown]
  - Diarrhoea [Unknown]
  - Stress [Unknown]

NARRATIVE: CASE EVENT DATE: 20230602
